FAERS Safety Report 10422867 (Version 3)
Quarter: 2014Q4

REPORT INFORMATION
  Report Type: Spontaneous
  Country: JP (occurrence: JP)
  Receive Date: 20140902
  Receipt Date: 20141013
  Transmission Date: 20150528
  Serious: Yes (Other)
  Sender: FDA-Public Use
  Company Number: JP-AMGEN-JPNSP2014066056

PATIENT
  Age: 58 Year
  Sex: Male
  Weight: 74.8 kg

DRUGS (12)
  1. RIMATIL [Concomitant]
     Active Substance: BUCILLAMINE
     Dosage: 100 MG, 3X/DAY
     Route: 048
     Dates: end: 20140513
  2. JANUVIA [Concomitant]
     Active Substance: SITAGLIPTIN PHOSPHATE
     Indication: DIABETES MELLITUS
     Dosage: 50 MG, 1X/DAY
     Route: 048
     Dates: start: 20120623
  3. FOLIAMIN [Concomitant]
     Active Substance: FOLIC ACID
     Indication: FOLATE DEFICIENCY
     Dosage: 5 MG, 1X/DAY
     Route: 048
     Dates: start: 20131028, end: 20140725
  4. ENBREL [Suspect]
     Active Substance: ETANERCEPT
     Indication: RHEUMATOID ARTHRITIS
     Dosage: 50 MG, WEEKLY
     Route: 058
     Dates: start: 20130806, end: 20140513
  5. METOLATE [Concomitant]
     Active Substance: METHOTREXATE
     Indication: RHEUMATOID ARTHRITIS
     Dosage: 6 MG, WEEKLY
     Route: 048
     Dates: start: 20121106, end: 20140513
  6. ENBREL [Suspect]
     Active Substance: ETANERCEPT
     Dosage: 50 MG, WEEKLY
     Route: 058
     Dates: start: 20140520
  7. RIMATIL [Concomitant]
     Active Substance: BUCILLAMINE
     Dosage: 100 MG, 3X/DAY
     Route: 048
     Dates: start: 20140617, end: 20140715
  8. RIMATIL [Concomitant]
     Active Substance: BUCILLAMINE
     Dosage: 50 MG, 1X/DAY
     Route: 048
     Dates: start: 20140617, end: 20140715
  9. METOLATE [Concomitant]
     Active Substance: METHOTREXATE
     Dosage: 6 MG, WEEKLY
     Route: 048
     Dates: start: 20140520, end: 20140715
  10. METGLUCO [Concomitant]
     Active Substance: METFORMIN HYDROCHLORIDE
     Indication: DIABETES MELLITUS
     Dosage: 250 MG, 2X/DAY
     Route: 048
     Dates: start: 20120623
  11. AMLODIPINE ODAN [Concomitant]
     Indication: HYPERTENSION
     Dosage: 5 MG, 1X/DAY
     Route: 048
     Dates: start: 20130528
  12. RIMATIL [Concomitant]
     Active Substance: BUCILLAMINE
     Indication: RHEUMATOID ARTHRITIS
     Dosage: 50 MG, 1X/DAY
     Route: 048
     Dates: start: 201304, end: 20140513

REACTIONS (1)
  - Platelet count decreased [Recovering/Resolving]

NARRATIVE: CASE EVENT DATE: 20140513
